FAERS Safety Report 9742378 (Version 1)
Quarter: 2013Q4

REPORT INFORMATION
  Report Type: Spontaneous
  Country: DE (occurrence: DE)
  Receive Date: 20131210
  Receipt Date: 20131210
  Transmission Date: 20140711
  Serious: Yes (Disabling)
  Sender: FDA-Public Use
  Company Number: GXKR2013DE003776

PATIENT
  Sex: 0

DRUGS (6)
  1. SIMVASTATIN [Suspect]
     Dosage: 80 MG, QD
     Route: 048
     Dates: start: 2007
  2. EZETROL [Suspect]
     Dosage: 10 MG, QD
     Route: 048
     Dates: start: 200909
  3. ATORVASTATIN [Concomitant]
     Dosage: 40 MG, QD
     Route: 048
     Dates: start: 201205
  4. OMACOR [Concomitant]
     Route: 048
     Dates: start: 201207
  5. ASS [Concomitant]
     Dosage: 100 MG, QD
     Route: 048
     Dates: start: 2005
  6. THYROXIN [Concomitant]
     Indication: AUTOIMMUNE THYROIDITIS
     Dosage: AS REQUIRED DUE TO METABOLIC STATE

REACTIONS (3)
  - Fasciitis [Recovered/Resolved with Sequelae]
  - Tendonitis [Recovered/Resolved with Sequelae]
  - Tendon pain [Recovered/Resolved with Sequelae]
